FAERS Safety Report 20673327 (Version 4)
Quarter: 2022Q2

REPORT INFORMATION
  Report Type: Spontaneous
  Country: GB (occurrence: GB)
  Receive Date: 20220405
  Receipt Date: 20220617
  Transmission Date: 20220721
  Serious: Yes (Hospitalization, Other)
  Sender: FDA-Public Use
  Company Number: GB-MYLANLABS-2022M1024438

PATIENT
  Age: 50 Year
  Sex: Female
  Weight: 81.25 kg

DRUGS (6)
  1. CLOZARIL [Suspect]
     Active Substance: CLOZAPINE
     Indication: Schizophrenia
     Dosage: UNK (START DATE: ??-???-2017)
     Route: 048
     Dates: end: 2017
  2. CLOZARIL [Suspect]
     Active Substance: CLOZAPINE
     Dosage: UNK (START DATE: 15-FEB-2021)
     Route: 048
     Dates: end: 20210223
  3. CLOZARIL [Suspect]
     Active Substance: CLOZAPINE
     Dosage: UNK, BID (25 MG MANE, 50 MG NOCTE)
     Route: 048
     Dates: start: 20220331, end: 20220412
  4. LEVETIRACETAM [Concomitant]
     Active Substance: LEVETIRACETAM
     Dosage: 250 MILLIGRAM, BID
     Route: 048
  5. VALPROATE SODIUM [Concomitant]
     Active Substance: VALPROATE SODIUM
     Dosage: 900 MILLIGRAM, BID
     Route: 048
  6. PROCYCLIDINE [Concomitant]
     Active Substance: PROCYCLIDINE
     Dosage: 5 MILLIGRAM, BID
     Route: 048

REACTIONS (16)
  - Diarrhoea [Recovered/Resolved]
  - Acute kidney injury [Unknown]
  - Metabolic acidosis [Unknown]
  - Neutropenia [Unknown]
  - Thrombocytopenia [Unknown]
  - Jaundice cholestatic [Unknown]
  - Psychotic symptom [Not Recovered/Not Resolved]
  - Renal injury [Unknown]
  - Liver injury [Unknown]
  - COVID-19 [Unknown]
  - Liver function test abnormal [Recovered/Resolved]
  - Off label use [Unknown]
  - Clostridium test positive [Unknown]
  - Hypovolaemia [Unknown]
  - Electrolyte imbalance [Unknown]
  - Lactose intolerance [Unknown]

NARRATIVE: CASE EVENT DATE: 20170202
